FAERS Safety Report 8983279 (Version 2)
Quarter: 2013Q1

REPORT INFORMATION
  Report Type: Spontaneous
  Country: VE (occurrence: VE)
  Receive Date: 20121224
  Receipt Date: 20130107
  Transmission Date: 20140127
  Serious: Yes (Other)
  Sender: FDA-Public Use
  Company Number: PHHY2012VE117989

PATIENT
  Age: 32 Year
  Sex: Female

DRUGS (7)
  1. GILENYA [Suspect]
     Indication: RELAPSING-REMITTING MULTIPLE SCLEROSIS
     Dosage: 0.5 MG, ONCE A DAY
     Route: 048
     Dates: start: 20120214
  2. NEURONTIN [Concomitant]
     Dosage: 300 MG, QHS
     Route: 048
  3. SIRDALUD [Concomitant]
     Dosage: 1 DF, QHS
     Route: 048
  4. TRYPTANOL [Concomitant]
     Dosage: 25 MG, QHS
     Route: 048
  5. CORMATIC [Concomitant]
     Dosage: 50 MG, QD
     Route: 048
  6. LIORESAL [Concomitant]
     Dosage: 12.5 MG, QD
  7. FERROFOL [Concomitant]
     Dosage: 1 DF, QD
     Route: 048

REACTIONS (3)
  - Thrombocytopenia [Recovered/Resolved]
  - Petechiae [Recovered/Resolved]
  - Pyrexia [Recovered/Resolved]
